FAERS Safety Report 14691119 (Version 2)
Quarter: 2018Q2

REPORT INFORMATION
  Report Type: Spontaneous
  Country: AU (occurrence: AU)
  Receive Date: 20180328
  Receipt Date: 20180501
  Transmission Date: 20180711
  Serious: Yes (Death, Other)
  Sender: FDA-Public Use
  Company Number: PHHY2018AU054913

PATIENT
  Age: 80 Year
  Sex: Male

DRUGS (1)
  1. ENTRESTO [Suspect]
     Active Substance: SACUBITRIL\VALSARTAN
     Indication: CARDIAC FAILURE
     Dosage: UNK UNK, BID
     Route: 048

REACTIONS (4)
  - Syncope [Fatal]
  - Myocardial infarction [Fatal]
  - Cardiac failure [Unknown]
  - Hypotension [Fatal]

NARRATIVE: CASE EVENT DATE: 20170905
